FAERS Safety Report 7979103-0 (Version None)
Quarter: 2011Q4

REPORT INFORMATION
  Report Type: 
  Country: None (occurrence: None)
  Receive Date: 20111214
  Receipt Date: 20111121
  Transmission Date: 20120403
  Serious: Yes (Hospitalization)
  Sender: FDA-Public Use
  Company Number: IT-SANOFI-AVENTIS-2011SA076338

PATIENT
  Age: 72 Year
  Sex: Female

DRUGS (6)
  1. COUMADIN [Suspect]
     Indication: CARDIAC VALVE PROSTHESIS USER
     Route: 048
     Dates: start: 20080101, end: 20111105
  2. LASITONE [Suspect]
     Route: 048
     Dates: start: 20080101, end: 20111105
  3. LANOXIN [Concomitant]
     Indication: ATRIAL FIBRILLATION
     Route: 048
     Dates: start: 20080101, end: 20111105
  4. IRON [Concomitant]
     Indication: IRON DEFICIENCY
     Route: 048
     Dates: start: 20080101, end: 20111105
  5. LOSARTAN POTASSIUM [Suspect]
     Route: 048
     Dates: start: 20080101, end: 20111105
  6. LASIX [Suspect]
     Route: 048
     Dates: start: 20080101, end: 20111105

REACTIONS (2)
  - MELAENA [None]
  - ANAEMIA [None]
